FAERS Safety Report 14579064 (Version 8)
Quarter: 2019Q3

REPORT INFORMATION
  Report Type: Report from Study
  Country: CA (occurrence: CA)
  Receive Date: 20180227
  Receipt Date: 20190918
  Transmission Date: 20191004
  Serious: Yes (Other)
  Sender: FDA-Public Use
  Company Number: CA-BRISTOL-MYERS SQUIBB COMPANY-BMS-2018-015282

PATIENT
  Age: 62 Year
  Sex: Male

DRUGS (1)
  1. ABATACEPT [Suspect]
     Active Substance: ABATACEPT
     Indication: RHEUMATOID ARTHRITIS
     Dosage: 125 MG, QWK
     Route: 058
     Dates: start: 20180110, end: 20190907

REACTIONS (8)
  - Inguinal hernia [Recovering/Resolving]
  - Joint stiffness [Not Recovered/Not Resolved]
  - Back pain [Not Recovered/Not Resolved]
  - Neck pain [Recovered/Resolved]
  - Drug ineffective [Unknown]
  - Rheumatoid arthritis [Unknown]
  - Musculoskeletal pain [Not Recovered/Not Resolved]
  - Folliculitis [Recovering/Resolving]

NARRATIVE: CASE EVENT DATE: 20180201
